FAERS Safety Report 23846009 (Version 2)
Quarter: 2024Q3

REPORT INFORMATION
  Report Type: Spontaneous
  Country: US (occurrence: US)
  Receive Date: 20240512
  Receipt Date: 20240808
  Transmission Date: 20241016
  Serious: No
  Sender: SANOFI AVENTIS
  Company Number: US-SA-SAC20240501002080

PATIENT
  Age: 39 Year
  Sex: Male

DRUGS (2)
  1. DUPIXENT [Suspect]
     Active Substance: DUPILUMAB
     Dosage: 300 MG, QOW
     Route: 058
  2. PREDNISONE [Concomitant]
     Active Substance: PREDNISONE
     Dosage: UNK

REACTIONS (7)
  - Eyelid skin dryness [Unknown]
  - Skin fissures [Unknown]
  - Pruritus [Unknown]
  - Eye pain [Unknown]
  - Rash macular [Not Recovered/Not Resolved]
  - Dry eye [Unknown]
  - Inappropriate schedule of product administration [Unknown]
